FAERS Safety Report 9369847 (Version 4)
Quarter: 2014Q2

REPORT INFORMATION
  Report Type: Spontaneous
  Country: US (occurrence: US)
  Receive Date: 20130626
  Receipt Date: 20140402
  Transmission Date: 20141212
  Serious: Yes (Hospitalization)
  Sender: FDA-Public Use
  Company Number: US-ROCHE-1241497

PATIENT
  Sex: Male

DRUGS (8)
  1. PEGASYS [Suspect]
     Indication: HEPATITIS B
     Route: 065
     Dates: end: 20120419
  2. PEGASYS [Suspect]
     Indication: HEPATITIS C
     Route: 065
     Dates: start: 20120507
  3. RIBAVIRIN [Suspect]
     Indication: HEPATITIS B
     Route: 065
  4. RIBAVIRIN [Suspect]
     Indication: HEPATITIS C
  5. GABAPENTIN [Concomitant]
     Route: 065
  6. XANAX [Concomitant]
  7. BABY ASPIRIN [Concomitant]
  8. AMLODIPINE [Concomitant]

REACTIONS (8)
  - Anoxia [Unknown]
  - Paralysis [Not Recovered/Not Resolved]
  - Cerebrovascular accident [Unknown]
  - Pneumonia [Unknown]
  - Tendon disorder [Unknown]
  - Neuropathy peripheral [Unknown]
  - Neurological symptom [Unknown]
  - Hypertension [Not Recovered/Not Resolved]
